FAERS Safety Report 20884538 (Version 1)
Quarter: 2022Q2

REPORT INFORMATION
  Report Type: Spontaneous
  Country: None (occurrence: FR)
  Receive Date: 20220527
  Receipt Date: 20220527
  Transmission Date: 20220720
  Serious: Yes (Death)
  Sender: FDA-Public Use
  Company Number: FR-B.Braun Medical Inc.-2129269

PATIENT
  Age: 31 Year
  Sex: Male

DRUGS (9)
  1. ACETAMINOPHEN [Suspect]
     Active Substance: ACETAMINOPHEN
  2. TROPATEPINE HYDROCHLORIDE, [Concomitant]
  3. PAROXETINE [Concomitant]
     Active Substance: PAROXETINE
  4. VALPROIC ACID, [Concomitant]
  5. PHENOBARBITAL [Suspect]
     Active Substance: PHENOBARBITAL
  6. RISPERIDONE [Concomitant]
     Active Substance: RISPERIDONE
  7. OXAZEPAM, [Concomitant]
  8. OLANZAPINE [Suspect]
     Active Substance: OLANZAPINE
  9. LEVETIRACETAM [Concomitant]
     Active Substance: LEVETIRACETAM

REACTIONS (1)
  - Death [Fatal]
